FAERS Safety Report 23111270 (Version 1)
Quarter: 2023Q4

REPORT INFORMATION
  Report Type: Spontaneous
  Country: IN (occurrence: IN)
  Receive Date: 20231026
  Receipt Date: 20231026
  Transmission Date: 20240109
  Serious: No
  Sender: FDA-Public Use
  Company Number: IN-JAZZ PHARMACEUTICALS-2023-IN-007481

PATIENT
  Age: 6 Year
  Sex: Female

DRUGS (1)
  1. DEFIBROTIDE SODIUM [Suspect]
     Active Substance: DEFIBROTIDE SODIUM
     Indication: Thrombotic microangiopathy
     Dosage: UNK

REACTIONS (2)
  - Off label use [Unknown]
  - Drug ineffective for unapproved indication [Unknown]
